FAERS Safety Report 14424107 (Version 1)
Quarter: 2018Q1

REPORT INFORMATION
  Report Type: Spontaneous
  Country: US (occurrence: US)
  Receive Date: 20180122
  Receipt Date: 20180122
  Transmission Date: 20180509
  Serious: Yes (Death)
  Sender: FDA-Public Use
  Company Number: None

PATIENT
  Age: 54 Year
  Sex: Female

DRUGS (1)
  1. HARVONI [Suspect]
     Active Substance: LEDIPASVIR\SOFOSBUVIR
     Indication: HEPATITIS C
     Dates: start: 20171103, end: 20171116

REACTIONS (5)
  - Chest pain [None]
  - Dyspepsia [None]
  - Abdominal pain upper [None]
  - Pain in extremity [None]
  - Pulse absent [None]

NARRATIVE: CASE EVENT DATE: 20171116
